FAERS Safety Report 21564692 (Version 2)
Quarter: 2022Q4

REPORT INFORMATION
  Report Type: Other
  Country: US (occurrence: None)
  Receive Date: 20221108
  Receipt Date: 20221114
  Transmission Date: 20230112
  Serious: Yes (Other)
  Sender: FDA-Public Use
  Company Number: US-ROCHE-3213114

PATIENT
  Sex: Female

DRUGS (1)
  1. VALCYTE [Suspect]
     Active Substance: VALGANCICLOVIR HYDROCHLORIDE
     Indication: Renal transplant
     Dosage: 2 TABLETS
     Route: 048

REACTIONS (1)
  - Cytomegalovirus infection [Unknown]
